FAERS Safety Report 6035183-3 (Version None)
Quarter: 2009Q1

REPORT INFORMATION
  Report Type: 
  Country: None (occurrence: None)
  Receive Date: 20090109
  Receipt Date: 20081231
  Transmission Date: 20090719
  Serious: Yes (Other)
  Sender: FDA-Public Use
  Company Number: GXKR2008IT12345

PATIENT
  Age: 4 Year
  Sex: Female

DRUGS (8)
  1. CYCLOSPORINE [Suspect]
     Indication: GRAFT VERSUS HOST DISEASE
     Dosage: 2 MG/KG/DAY, INTRAVENOUS
     Route: 042
  2. CYCLOSPORINE [Suspect]
     Indication: PROPHYLAXIS AGAINST GRAFT VERSUS HOST DISEASE
     Dosage: 2 MG/KG/DAY, INTRAVENOUS
     Route: 042
  3. METHOTREXATE [Suspect]
     Indication: PROPHYLAXIS AGAINST GRAFT VERSUS HOST DISEASE
     Dosage: 15 MG/M2, DAY +1 ; 10 MG/M2, DAY +3, +6 AND +11
  4. PREDNISONE [Suspect]
     Indication: GRAFT VERSUS HOST DISEASE
  5. CORTICOSTEROIDS (NO INGREDIENTS/SUBSTANCES) [Suspect]
     Dosage: ORAL
     Route: 048
  6. CORTICOSTEROIDS [Suspect]
     Dosage: TOPICAL
     Route: 061
  7. LEVOTHYROXINE SODIUM [Concomitant]
  8. HUMAN GROWTH HORMONE, RECOMBINANT (SOMATROPIN) [Concomitant]

REACTIONS (1)
  - BASAL CELL CARCINOMA [None]
